FAERS Safety Report 5585491-5 (Version None)
Quarter: 2008Q1

REPORT INFORMATION
  Report Type: 
  Country: None (occurrence: None)
  Receive Date: 20080108
  Receipt Date: 20080108
  Transmission Date: 20080703
  Serious: No
  Sender: FDA-Public Use
  Company Number: None

PATIENT

DRUGS (1)
  1. FLEETS ENEMA [Suspect]
     Dosage: ENEMA

REACTIONS (3)
  - CONFUSIONAL STATE [None]
  - DIARRHOEA [None]
  - MEDICATION ERROR [None]
